FAERS Safety Report 16882975 (Version 1)
Quarter: 2019Q4

REPORT INFORMATION
  Report Type: Report from Study
  Country: None (occurrence: US)
  Receive Date: 20191004
  Receipt Date: 20191004
  Transmission Date: 20200122
  Serious: Yes (Other)
  Sender: FDA-Public Use
  Company Number: US-ABBVIE-19K-163-2945765-00

PATIENT
  Age: 47 Year
  Sex: Male

DRUGS (1)
  1. HUMIRA [Suspect]
     Active Substance: ADALIMUMAB
     Indication: PSORIASIS
     Route: 058

REACTIONS (4)
  - Cataract [Recovered/Resolved]
  - Retinal detachment [Recovered/Resolved]
  - Intervertebral disc protrusion [Unknown]
  - Psoriasis [Unknown]

NARRATIVE: CASE EVENT DATE: 201904
